FAERS Safety Report 18208655 (Version 1)
Quarter: 2020Q3

REPORT INFORMATION
  Report Type: Spontaneous
  Country: US (occurrence: US)
  Receive Date: 20200828
  Receipt Date: 20200828
  Transmission Date: 20201103
  Serious: No
  Sender: FDA-Public Use
  Company Number: US-INDIVIOR LIMITED-INDV-125619-2020

PATIENT
  Age: 55 Year
  Sex: Female

DRUGS (2)
  1. PERSERIS [Suspect]
     Active Substance: RISPERIDONE
     Indication: SCHIZOPHRENIA
     Dosage: 90 MILLIGRAM, QMO (IN ABDOMEN)
     Route: 058
     Dates: start: 202005
  2. PERSERIS [Suspect]
     Active Substance: RISPERIDONE
     Dosage: 90 MILLIGRAM, QMO (IN ARM)
     Route: 058
     Dates: start: 20200715

REACTIONS (2)
  - No adverse event [Unknown]
  - Product administered at inappropriate site [Recovered/Resolved]

NARRATIVE: CASE EVENT DATE: 202007
